FAERS Safety Report 22369003 (Version 2)
Quarter: 2023Q2

REPORT INFORMATION
  Report Type: Spontaneous
  Country: US (occurrence: US)
  Receive Date: 20230525
  Receipt Date: 20230602
  Transmission Date: 20230721
  Serious: Yes (Other)
  Sender: FDA-Public Use
  Company Number: US-BAUSCH-BL-2023-007354

PATIENT
  Age: 66 Year
  Sex: Female
  Weight: 64.4 kg

DRUGS (13)
  1. VENLAFAXINE HYDROCHLORIDE [Interacting]
     Active Substance: VENLAFAXINE HYDROCHLORIDE
     Indication: Antidepressant therapy
     Route: 048
  2. VENLAFAXINE HYDROCHLORIDE [Interacting]
     Active Substance: VENLAFAXINE HYDROCHLORIDE
     Dosage: VENLAFAXINE XR DOSAGE WAS FURTHER REDUCED TO 187.5 MG/DAY AT WEEK 12.
     Route: 048
  3. VENLAFAXINE HYDROCHLORIDE [Interacting]
     Active Substance: VENLAFAXINE HYDROCHLORIDE
     Indication: Antidepressant therapy
     Dosage: VENLAFAXINE XR DOSAGE WAS FURTHER REDUCED TO 206 MG/DAY AT WEEK 8.
     Route: 048
  4. VENLAFAXINE HYDROCHLORIDE [Interacting]
     Active Substance: VENLAFAXINE HYDROCHLORIDE
     Dosage: VENLAFAXINE XR DOSAGE WAS FURTHER REDUCED TO 169 MG/DAY AT WEEK 18.
     Route: 048
  5. VENLAFAXINE HYDROCHLORIDE [Interacting]
     Active Substance: VENLAFAXINE HYDROCHLORIDE
     Dosage: VENLAFAXINE XR DOSAGE WAS FURTHER REDUCED TO 155 MG/DAY AT WEEK 24.
     Route: 048
  6. LEVOTHYROXINE [Suspect]
     Active Substance: LEVOTHYROXINE
     Indication: Blood thyroid stimulating hormone decreased
     Dosage: 171?MCG/DAY
     Route: 048
  7. LEVOTHYROXINE [Suspect]
     Active Substance: LEVOTHYROXINE
     Dosage: DOSE WAS REDUCED BY 10% TO 157?MCG/DAY AT WEEK 12-18
     Route: 048
  8. LEVOTHYROXINE [Suspect]
     Active Substance: LEVOTHYROXINE
     Dosage: DOSE WAS FURTHER REDUCED TO 141?MCG/DAY AT WEEK 24
     Route: 048
  9. TRAZODONE [Concomitant]
     Active Substance: TRAZODONE HYDROCHLORIDE
     Indication: Product used for unknown indication
     Dosage: 100?MG AT BEDTIME
     Route: 065
  10. VALSARTAN [Concomitant]
     Active Substance: VALSARTAN
     Indication: Product used for unknown indication
     Dosage: 360?MG/DAY
     Route: 065
  11. AMLODIPINE [Concomitant]
     Active Substance: AMLODIPINE BESYLATE
     Indication: Product used for unknown indication
     Dosage: 5?MG/DAY
     Route: 065
  12. ZOLEDRONIC ACID [Concomitant]
     Active Substance: ZOLEDRONIC ACID
     Indication: Product used for unknown indication
     Dosage: 15?MG INFUSION ONCE ANNUALLY
     Route: 065
  13. BUPROPION HYDROCHLORIDE [Concomitant]
     Active Substance: BUPROPION HYDROCHLORIDE
     Indication: Depression
     Dosage: ER 150?MG/DAY WAS ADDED TO AUGMENT ANTIDEPRESSIVE MEDICATION REGIMEN FOR 8?WEEKS
     Route: 065

REACTIONS (5)
  - Drug interaction [Recovered/Resolved]
  - Blood thyroid stimulating hormone decreased [Recovered/Resolved]
  - Ventricular tachycardia [Recovered/Resolved]
  - Ventricular extrasystoles [Recovered/Resolved]
  - Blood pressure increased [Recovered/Resolved]
